FAERS Safety Report 8461583-8 (Version None)
Quarter: 2012Q2

REPORT INFORMATION
  Report Type: 
  Country: None (occurrence: None)
  Receive Date: 20120625
  Receipt Date: 20120618
  Transmission Date: 20120825
  Serious: Yes (Other)
  Sender: FDA-Public Use
  Company Number: PHHY2012BR053537

PATIENT
  Sex: Male

DRUGS (1)
  1. TEGRETOL-XR [Suspect]
     Dosage: 200 MG, UNK

REACTIONS (1)
  - HEPATIC STEATOSIS [None]
